FAERS Safety Report 5186491-X (Version None)
Quarter: 2006Q4

REPORT INFORMATION
  Report Type: 
  Country: None (occurrence: None)
  Receive Date: 20061213
  Receipt Date: 20061127
  Transmission Date: 20070319
  Serious: Yes (Hospitalization)
  Sender: FDA-Public Use
  Company Number: 232360

PATIENT
  Age: 50 Year
  Sex: Female
  Weight: 85.7 kg

DRUGS (6)
  1. AVASTIN [Suspect]
     Indication: BREAST CANCER METASTATIC
     Dosage: 1285.5 MG, Q3W, INTRAVENOUS
     Route: 042
     Dates: start: 20061025, end: 20061101
  2. CAPECITABINE (CAPECITABINE) [Suspect]
     Indication: BREAST CANCER METASTATIC
     Dosage: 3800 MG Q2W, ORAL
     Route: 048
     Dates: start: 20061025, end: 20061031
  3. NAVELBINE [Suspect]
     Indication: BREAST CANCER METASTATIC
     Dosage: 57.9 MG, 1/WEEK, INTRAVENOUS
     Route: 042
     Dates: start: 20061025, end: 20061025
  4. DEXAMETHASONE TAB [Concomitant]
  5. FENITOINA (PHENYTOIN) [Concomitant]
  6. ENALAPRIL MALEATE [Concomitant]

REACTIONS (2)
  - CEREBRAL HAEMORRHAGE [None]
  - GAIT DISTURBANCE [None]
